FAERS Safety Report 16783504 (Version 1)
Quarter: 2019Q3

REPORT INFORMATION
  Report Type: Other
  Country: DE (occurrence: DE)
  Receive Date: 20190907
  Receipt Date: 20190907
  Transmission Date: 20191005
  Serious: Yes (Other)
  Sender: FDA-Public Use
  Company Number: DE-MACLEODS PHARMACEUTICALS US LTD-MAC2019022816

PATIENT

DRUGS (2)
  1. METHYLDOPA. [Concomitant]
     Active Substance: METHYLDOPA
     Indication: HYPERTENSION
     Dosage: 1000 MILLIGRAM, QD 1000 [MG/D ] 4 SEPARATED DOSES, 3 TRIMESTER
     Route: 048
     Dates: start: 20181027, end: 20181029
  2. VALSARTAN. [Suspect]
     Active Substance: VALSARTAN
     Indication: HYPERTENSION
     Dosage: 80 MILLIGRAM, QD, 0. - 37. GESTATIONAL WEEK
     Route: 048
     Dates: start: 20180209, end: 20181026

REACTIONS (2)
  - Exposure during pregnancy [Unknown]
  - Oligohydramnios [Not Recovered/Not Resolved]
